FAERS Safety Report 13865891 (Version 4)
Quarter: 2017Q4

REPORT INFORMATION
  Report Type: Report from Study
  Country: US (occurrence: US)
  Receive Date: 20170814
  Receipt Date: 20171120
  Transmission Date: 20180320
  Serious: Yes (Hospitalization, Other)
  Sender: FDA-Public Use
  Company Number: US-GILEAD-2017-0287540

PATIENT
  Age: 87 Year
  Sex: Male

DRUGS (2)
  1. AMBRISENTAN [Suspect]
     Active Substance: AMBRISENTAN
     Indication: PRODUCT USED FOR UNKNOWN INDICATION
     Dosage: 5 MG, QD
     Route: 065
     Dates: start: 20160921
  2. COUMADIN [Concomitant]
     Active Substance: WARFARIN SODIUM

REACTIONS (9)
  - Blood urine present [Unknown]
  - Cardiac failure congestive [Unknown]
  - Catheterisation cardiac [Recovered/Resolved]
  - Catheterisation cardiac [Unknown]
  - Peripheral swelling [Unknown]
  - Oesophageal rupture [Unknown]
  - Pulmonary embolism [Unknown]
  - Haematochezia [Unknown]
  - Thrombosis [Unknown]

NARRATIVE: CASE EVENT DATE: 20170824
